FAERS Safety Report 9248201 (Version 4)
Quarter: 2014Q1

REPORT INFORMATION
  Report Type: Spontaneous
  Country: US (occurrence: US)
  Receive Date: 20130423
  Receipt Date: 20140220
  Transmission Date: 20141002
  Serious: Yes (Other)
  Sender: FDA-Public Use
  Company Number: US-ASTRAZENECA-2013SE27285

PATIENT
  Age: 42 Year
  Sex: Female
  Weight: 114.8 kg

DRUGS (28)
  1. NEXIUM [Suspect]
     Indication: HYPERCHLORHYDRIA
     Route: 048
  2. NEXIUM [Suspect]
     Indication: HYPERCHLORHYDRIA
     Dosage: PER DAY 1
     Route: 048
     Dates: start: 2008, end: 2010
  3. NEXIUM [Suspect]
     Indication: HYPERCHLORHYDRIA
     Route: 048
     Dates: start: 2008, end: 2011
  4. NEXIUM [Suspect]
     Indication: HYPERCHLORHYDRIA
     Dosage: 30 MG PER DAY 1
     Route: 048
     Dates: start: 20110912
  5. NEXIUM [Suspect]
     Indication: HYPERCHLORHYDRIA
     Route: 048
     Dates: start: 20100216
  6. NEXIUM [Suspect]
     Indication: HYPERCHLORHYDRIA
     Route: 048
     Dates: start: 20120410
  7. DEXILANT [Concomitant]
     Indication: GASTROOESOPHAGEAL REFLUX DISEASE
     Dates: start: 20120503
  8. TUMS [Concomitant]
     Dates: start: 20120817
  9. PEPTO BISMOL [Concomitant]
     Dates: start: 20121122
  10. LAMICTAL [Concomitant]
     Indication: BIPOLAR DISORDER
     Route: 048
  11. GEODON [Concomitant]
     Indication: BIPOLAR DISORDER
     Route: 048
  12. XANAX [Concomitant]
     Indication: ANXIETY
     Dates: start: 20100301
  13. NORVASE [Concomitant]
     Indication: BLOOD PRESSURE ABNORMAL
     Route: 048
     Dates: start: 20101214
  14. LISINOPRIL [Concomitant]
     Indication: BLOOD PRESSURE ABNORMAL
     Route: 048
     Dates: start: 20100321
  15. SYNTHROID [Concomitant]
     Indication: HYPOTHYROIDISM
     Route: 048
     Dates: start: 20100321
  16. PREMPRO [Concomitant]
     Indication: HORMONE THERAPY
     Dates: start: 201303
  17. VICODIN [Concomitant]
     Indication: PAIN MANAGEMENT
  18. RESTORIL [Concomitant]
     Route: 048
     Dates: start: 20100301
  19. TRAZADONE [Concomitant]
     Route: 048
     Dates: start: 20100301
  20. NEURONTIN [Concomitant]
     Route: 048
  21. REQUIP [Concomitant]
     Route: 048
     Dates: start: 20100216
  22. GLIMEPIRIDE [Concomitant]
     Dates: start: 20100218
  23. PLAVIX [Concomitant]
     Route: 048
     Dates: start: 20100218
  24. MELOXICAM [Concomitant]
     Route: 048
     Dates: start: 20100216
  25. CYCLOBENZAPRINE [Concomitant]
     Route: 048
     Dates: start: 20110213
  26. DEPLIN [Concomitant]
     Route: 048
     Dates: start: 20110628
  27. METHOCARBAMOL [Concomitant]
     Route: 048
     Dates: start: 20110607
  28. TRAMADOL [Concomitant]
     Route: 048
     Dates: start: 20120410

REACTIONS (9)
  - Foot fracture [Unknown]
  - Osteoporosis [Unknown]
  - Bone disorder [Unknown]
  - Diabetes mellitus [Unknown]
  - Osteopenia [Unknown]
  - Chronic obstructive pulmonary disease [Unknown]
  - Arthritis [Unknown]
  - Type 1 diabetes mellitus [Unknown]
  - Diabetes mellitus inadequate control [Unknown]
